FAERS Safety Report 5314897-4 (Version None)
Quarter: 2007Q2

REPORT INFORMATION
  Report Type: 
  Country: None (occurrence: None)
  Receive Date: 20070426
  Receipt Date: 20070416
  Transmission Date: 20071010
  Serious: Yes (Hospitalization)
  Sender: FDA-Public Use
  Company Number: PAR_0567_2006

PATIENT
  Sex: Male
  Weight: 90.7194 kg

DRUGS (5)
  1. HYDRALAZINE HYDROCHLORIDE [Suspect]
     Indication: ATRIAL FIBRILLATION
     Dosage: (50 MG ORAL)
     Route: 048
     Dates: start: 20060317, end: 20060320
  2. VERAPAMIL HYDROCHLORIDE [Concomitant]
  3. RANITIDINE [Concomitant]
  4. AZMACORT [Concomitant]
  5. ALBUTEROL SULFATE /00139502/ [Concomitant]

REACTIONS (11)
  - ASTHMA [None]
  - ATRIAL FIBRILLATION [None]
  - CARDIAC FAILURE CONGESTIVE [None]
  - CHRONIC OBSTRUCTIVE PULMONARY DISEASE [None]
  - DYSPNOEA [None]
  - DYSPNOEA EXERTIONAL [None]
  - OEDEMA GENITAL [None]
  - OEDEMA PERIPHERAL [None]
  - PNEUMONIA [None]
  - RENAL FAILURE [None]
  - WHEEZING [None]
